FAERS Safety Report 7563759-0 (Version None)
Quarter: 2011Q2

REPORT INFORMATION
  Report Type: 
  Country: None (occurrence: None)
  Receive Date: 20110622
  Receipt Date: 20110607
  Transmission Date: 20111010
  Serious: Yes (Other)
  Sender: FDA-Public Use
  Company Number: GB-WATSON-2011-08412

PATIENT
  Age: 46 Year
  Sex: Male

DRUGS (5)
  1. RAMIPRIL [Suspect]
     Indication: HYPERTENSION
     Dosage: 10 MG, UNK
     Route: 048
     Dates: start: 20100719, end: 20110509
  2. ACAMPROSATE [Concomitant]
     Indication: ALCOHOL REHABILITATION
     Dosage: 666 MG, TID
     Route: 048
     Dates: start: 20110328
  3. FLUOXETINE HCL [Concomitant]
     Indication: DEPRESSION
     Dosage: 20 MG, BID
     Route: 048
     Dates: start: 20090701
  4. DISULFIRAM [Suspect]
     Indication: ALCOHOL REHABILITATION
     Dosage: 200 MG, UNK
     Route: 048
     Dates: start: 20110328, end: 20110428
  5. VITAMIN B COMPLEX STRONG [Concomitant]
     Indication: ALCOHOLISM
     Dosage: 2 DF, TID
     Route: 048
     Dates: start: 20110301

REACTIONS (2)
  - ALANINE AMINOTRANSFERASE INCREASED [None]
  - GAMMA-GLUTAMYLTRANSFERASE [None]
